FAERS Safety Report 17685291 (Version 1)
Quarter: 2020Q2

REPORT INFORMATION
  Report Type: Report from Study
  Country: DE (occurrence: DE)
  Receive Date: 20200420
  Receipt Date: 20200420
  Transmission Date: 20200714
  Serious: Yes (Hospitalization)
  Sender: FDA-Public Use
  Company Number: PHHO2016DE011268

PATIENT
  Age: 55 Year
  Sex: Female
  Weight: 61.5 kg

DRUGS (17)
  1. LCI699 [Suspect]
     Active Substance: OSILODROSTAT
     Dosage: 5 MG, UNK
     Route: 048
     Dates: start: 20150413, end: 20150413
  2. LCI699 [Suspect]
     Active Substance: OSILODROSTAT
     Dosage: 5 MG, UNK
     Route: 048
     Dates: start: 20150423, end: 20150423
  3. LCI699 [Suspect]
     Active Substance: OSILODROSTAT
     Dosage: 5 MG, UNK
     Route: 048
     Dates: start: 20150426, end: 20150426
  4. LCI699 [Suspect]
     Active Substance: OSILODROSTAT
     Dosage: 2 MG, UNK
     Route: 048
     Dates: start: 20151202, end: 20151202
  5. LCI699 [Suspect]
     Active Substance: OSILODROSTAT
     Dosage: 2 MG, 1-0-1
     Route: 048
     Dates: start: 20160810
  6. AMLODIPINE [Concomitant]
     Active Substance: AMLODIPINE BESYLATE
     Indication: HYPERTENSION
     Dosage: 10 MG, UNK
     Route: 048
     Dates: start: 20150116
  7. LCI699 [Suspect]
     Active Substance: OSILODROSTAT
     Dosage: 4 MG, UNK
     Route: 048
     Dates: start: 20160526, end: 20160531
  8. OSILODROSTAT [Suspect]
     Active Substance: OSILODROSTAT
     Indication: PITUITARY-DEPENDENT CUSHING^S SYNDROME
     Dosage: UNK
     Route: 048
     Dates: start: 20150820, end: 20151015
  9. LCI699 [Suspect]
     Active Substance: OSILODROSTAT
     Dosage: 4 MG, UNK
     Route: 048
     Dates: start: 20151203, end: 20160517
  10. LCI699 [Suspect]
     Active Substance: OSILODROSTAT
     Dosage: 10 MG, UNK
     Route: 048
     Dates: start: 20150427, end: 20150430
  11. LCI699 [Suspect]
     Active Substance: OSILODROSTAT
     Dosage: 2 MG, UNK
     Route: 048
     Dates: start: 20160801, end: 20160801
  12. LCI699 [Suspect]
     Active Substance: OSILODROSTAT
     Dosage: 10 MG, UNK
     Route: 048
     Dates: start: 20150327, end: 20150412
  13. LCI699 [Suspect]
     Active Substance: OSILODROSTAT
     Dosage: 2 MG, UNK
     Route: 048
     Dates: start: 20160518, end: 20160518
  14. LCI699 [Suspect]
     Active Substance: OSILODROSTAT
     Indication: PITUITARY-DEPENDENT CUSHING^S SYNDROME
     Dosage: 2 MG, BID
     Route: 048
     Dates: start: 20150219, end: 20150325
  15. LCI699 [Suspect]
     Active Substance: OSILODROSTAT
     Dosage: 7 MG, UNK
     Route: 048
     Dates: start: 20150326, end: 20150326
  16. LCI699 [Suspect]
     Active Substance: OSILODROSTAT
     Dosage: 6 MG, UNK
     Route: 048
     Dates: start: 20150501, end: 20150806
  17. LCI699 [Suspect]
     Active Substance: OSILODROSTAT
     Dosage: 4 MG, UNK
     Route: 048
     Dates: start: 20151028, end: 20151125

REACTIONS (1)
  - Adrenal insufficiency [Recovered/Resolved]

NARRATIVE: CASE EVENT DATE: 20160801
